FAERS Safety Report 17713279 (Version 4)
Quarter: 2021Q2

REPORT INFORMATION
  Report Type: Spontaneous
  Country: US (occurrence: US)
  Receive Date: 20200427
  Receipt Date: 20210625
  Transmission Date: 20210716
  Serious: Yes (Other)
  Sender: FDA-Public Use
  Company Number: US-GILEAD-2020-0460503

PATIENT
  Age: 58 Year
  Sex: Male
  Weight: 86.17 kg

DRUGS (44)
  1. CIALIS [Concomitant]
     Active Substance: TADALAFIL
  2. ACETAMINOPHEN. [Concomitant]
     Active Substance: ACETAMINOPHEN
  3. VIDEX [Concomitant]
     Active Substance: DIDANOSINE
  4. THEREMS M [Concomitant]
     Active Substance: MINERALS\VITAMINS
  5. LEVOFLOXACIN. [Concomitant]
     Active Substance: LEVOFLOXACIN
  6. VITAMIN E NOS [Concomitant]
     Active Substance: .ALPHA.-TOCOPHEROL
  7. TRUVADA [Suspect]
     Active Substance: EMTRICITABINE\TENOFOVIR DISOPROXIL FUMARATE
     Indication: HIV INFECTION
     Dosage: UNK
     Route: 048
     Dates: start: 20100324, end: 20151207
  8. AMOXICILLIN. [Concomitant]
     Active Substance: AMOXICILLIN
  9. NORVIR [Concomitant]
     Active Substance: RITONAVIR
  10. REYATAZ [Concomitant]
     Active Substance: ATAZANAVIR SULFATE
  11. CELEBREX [Concomitant]
     Active Substance: CELECOXIB
  12. MELOXICAM. [Concomitant]
     Active Substance: MELOXICAM
  13. KETOROLAC [Concomitant]
     Active Substance: KETOROLAC TROMETHAMINE
  14. SERTRALINE [Concomitant]
     Active Substance: SERTRALINE HYDROCHLORIDE
  15. GENVOYA [Concomitant]
     Active Substance: COBICISTAT\ELVITEGRAVIR\EMTRICITABINE\TENOFOVIR ALAFENAMIDE FUMARATE
  16. WARFARIN [Concomitant]
     Active Substance: WARFARIN
  17. AZITHROMYCIN ANHYDROUS. [Concomitant]
     Active Substance: AZITHROMYCIN ANHYDROUS
  18. CLINDAMYCIN. [Concomitant]
     Active Substance: CLINDAMYCIN
  19. TAMSULOSIN [Concomitant]
     Active Substance: TAMSULOSIN
  20. ANDROGEL [Concomitant]
     Active Substance: TESTOSTERONE
  21. FLUTICASONE. [Concomitant]
     Active Substance: FLUTICASONE
  22. BUTALBITAL, ACETAMINOPHEN, AND CAFFEINE [Concomitant]
     Active Substance: ACETAMINOPHEN\BUTALBITAL\CAFFEINE
  23. BENZONATATE. [Concomitant]
     Active Substance: BENZONATATE
  24. ASPIRINE [Concomitant]
     Active Substance: ASPIRIN
  25. INVIRASE [Concomitant]
     Active Substance: SAQUINAVIR MESYLATE
  26. ZIAGEN [Concomitant]
     Active Substance: ABACAVIR SULFATE
  27. CYCLOBENZAPRINE. [Concomitant]
     Active Substance: CYCLOBENZAPRINE
  28. ALPRAZOLAM. [Concomitant]
     Active Substance: ALPRAZOLAM
  29. METHOCARBAMOL. [Concomitant]
     Active Substance: METHOCARBAMOL
  30. OMEPRAZOLE. [Concomitant]
     Active Substance: OMEPRAZOLE
  31. PREDNISONE. [Concomitant]
     Active Substance: PREDNISONE
  32. METOCLOPRAMIDE. [Concomitant]
     Active Substance: METOCLOPRAMIDE
  33. VITAMIN B COMPLEX [Concomitant]
     Active Substance: CYANOCOBALAMIN\DEXPANTHENOL\NIACINAMIDE\PYRIDOXINE HYDROCHLORIDE\RIBOFLAVIN 5^-PHOSPHATE SODIUM\THIAMINE HYDROCHLORIDE\VITAMIN B COMPLEX
  34. ATORVASTATIN [Concomitant]
     Active Substance: ATORVASTATIN
  35. PREZISTA [Concomitant]
     Active Substance: DARUNAVIR ETHANOLATE
  36. TIVICAY [Concomitant]
     Active Substance: DOLUTEGRAVIR SODIUM
  37. TRIUMEQ [Concomitant]
     Active Substance: ABACAVIR SULFATE\DOLUTEGRAVIR SODIUM\LAMIVUDINE
  38. LORATADINE. [Concomitant]
     Active Substance: LORATADINE
  39. TESTIM [Concomitant]
     Active Substance: TESTOSTERONE
  40. OXYCODONE/APAP [Concomitant]
     Active Substance: ACETAMINOPHEN\OXYCODONE HYDROCHLORIDE
  41. BANOPHEN [Concomitant]
     Active Substance: DIPHENHYDRAMINE HYDROCHLORIDE
  42. DIAZEPAM. [Concomitant]
     Active Substance: DIAZEPAM
  43. OXYCONTIN [Concomitant]
     Active Substance: OXYCODONE HYDROCHLORIDE
  44. VALACYCLOVIR HYDROCHLORIDE. [Concomitant]
     Active Substance: VALACYCLOVIR HYDROCHLORIDE

REACTIONS (12)
  - Bone density decreased [Not Recovered/Not Resolved]
  - Emotional distress [Unknown]
  - Hip arthroplasty [Not Recovered/Not Resolved]
  - Spinal fracture [Unknown]
  - Tooth extraction [Not Recovered/Not Resolved]
  - Osteoporosis [Not Recovered/Not Resolved]
  - Multiple fractures [Unknown]
  - Tooth loss [Not Recovered/Not Resolved]
  - Tooth fracture [Not Recovered/Not Resolved]
  - Pain [Unknown]
  - Osteoarthritis [Not Recovered/Not Resolved]
  - Economic problem [Unknown]

NARRATIVE: CASE EVENT DATE: 20171129
